FAERS Safety Report 4278075-2 (Version None)
Quarter: 2004Q1

REPORT INFORMATION
  Report Type: 
  Country: None (occurrence: None)
  Receive Date: 20040120
  Receipt Date: 20040109
  Transmission Date: 20041129
  Serious: Yes (Life-Threatening, Hospitalization)
  Sender: FDA-Public Use
  Company Number: GB-JNJFOC-20040101657

PATIENT
  Sex: Male
  Weight: 70 kg

DRUGS (3)
  1. REMICADE [Suspect]
     Indication: ANKYLOSING SPONDYLITIS
     Dosage: 350 MG, INTRAVENOUS
     Route: 042
     Dates: start: 20020801, end: 20030801
  2. METHOTREXATE [Suspect]
     Indication: ANKYLOSING SPONDYLITIS
     Dosage: 7.5 MG, ORAL
     Route: 048
     Dates: start: 20020601, end: 20031001
  3. PHENYLBUTAZONE (PHENYLBUTAZONE) [Concomitant]

REACTIONS (3)
  - DRUG INTERACTION [None]
  - PANCYTOPENIA [None]
  - PNEUMONIA [None]
